FAERS Safety Report 20700168 (Version 1)
Quarter: 2022Q2

REPORT INFORMATION
  Report Type: Spontaneous
  Country: US (occurrence: US)
  Receive Date: 20220412
  Receipt Date: 20220412
  Transmission Date: 20220721
  Serious: No
  Sender: FDA-Public Use
  Company Number: US-NOVARTISTESTPH-NVSC2022US082937

PATIENT
  Age: 15 Year

DRUGS (1)
  1. COSENTYX [Suspect]
     Active Substance: SECUKINUMAB
     Indication: Juvenile idiopathic arthritis
     Dosage: UNK UNK, QMO (75 MG OR 150 MG)
     Route: 058

REACTIONS (2)
  - Psoriasis [Not Recovered/Not Resolved]
  - Therapy non-responder [Not Recovered/Not Resolved]
